FAERS Safety Report 4441102-3 (Version None)
Quarter: 2004Q3

REPORT INFORMATION
  Report Type: 
  Country: None (occurrence: None)
  Receive Date: 20040831
  Receipt Date: 20040831
  Transmission Date: 20050211
  Serious: Yes (Other)
  Sender: FDA-Public Use
  Company Number: None

PATIENT
  Age: 39 Year
  Sex: Female
  Weight: 62.1428 kg

DRUGS (3)
  1. REMICADE [Suspect]
     Indication: CROHN'S DISEASE
     Dosage: SINGLE INFUSION OVER 2 1/2 HRS 5 MG/KG
     Route: 042
     Dates: start: 20040806
  2. PENTASA [Concomitant]
  3. ESTRADIOL [Concomitant]

REACTIONS (7)
  - ARTHRALGIA [None]
  - CHILLS [None]
  - CONFUSIONAL STATE [None]
  - CONVULSION [None]
  - HYPERHIDROSIS [None]
  - JOINT SWELLING [None]
  - TREMOR [None]
